FAERS Safety Report 14328573 (Version 2)
Quarter: 2018Q1

REPORT INFORMATION
  Report Type: Report from Study
  Country: DE (occurrence: DE)
  Receive Date: 20171227
  Receipt Date: 20180329
  Transmission Date: 20180509
  Serious: No
  Sender: FDA-Public Use
  Company Number: DE-PFIZER INC-2017546071

PATIENT
  Age: 73 Year
  Sex: Female
  Weight: 60 kg

DRUGS (2)
  1. GEMCITABINE HYDROCHLORIDE. [Suspect]
     Active Substance: GEMCITABINE HYDROCHLORIDE
     Indication: PANCREATIC CARCINOMA
     Dosage: 1550 MILLIGRAM, LAST ADMINISTRATION ON 05JUL2017
     Route: 065
     Dates: start: 20161010
  2. ABRAXANE [Suspect]
     Active Substance: PACLITAXEL
     Indication: PANCREATIC CARCINOMA
     Dosage: 193 MILLIGRAM, LAST ADMINISTRATION ON 05JUL2017
     Route: 041
     Dates: start: 20161010

REACTIONS (1)
  - Polyneuropathy [Not Recovered/Not Resolved]

NARRATIVE: CASE EVENT DATE: 20170308
